FAERS Safety Report 5951241-3 (Version None)
Quarter: 2008Q4

REPORT INFORMATION
  Report Type: 
  Country: None (occurrence: None)
  Receive Date: 20081112
  Receipt Date: 20081112
  Transmission Date: 20090506
  Serious: Yes (Hospitalization)
  Sender: FDA-Public Use
  Company Number: None

PATIENT
  Sex: Male
  Weight: 112 kg

DRUGS (6)
  1. CISPLATIN [Suspect]
     Dosage: 200 MG
     Dates: end: 20081107
  2. CEFEPIME [Concomitant]
  3. FENTANYL [Concomitant]
  4. LEVAQUIN [Concomitant]
  5. OXYCODONE HCL [Concomitant]
  6. ROXANOL [Concomitant]

REACTIONS (9)
  - ASPIRATION [None]
  - CHEST X-RAY ABNORMAL [None]
  - COUGH [None]
  - DYSPHAGIA [None]
  - NEUTROPHIL COUNT DECREASED [None]
  - ODYNOPHAGIA [None]
  - PYREXIA [None]
  - SQUAMOUS CELL CARCINOMA [None]
  - WHITE BLOOD CELL COUNT DECREASED [None]
